FAERS Safety Report 5721164-3 (Version None)
Quarter: 2008Q2

REPORT INFORMATION
  Report Type: 
  Country: None (occurrence: None)
  Receive Date: 20080429
  Receipt Date: 20080425
  Transmission Date: 20081010
  Serious: Yes (Hospitalization)
  Sender: FDA-Public Use
  Company Number: B0509761A

PATIENT
  Age: 60 Year
  Sex: Male

DRUGS (5)
  1. SAWACILLIN [Suspect]
     Dosage: 750MG TWICE PER DAY
     Route: 048
     Dates: start: 20080214, end: 20080221
  2. OMEPRAL [Suspect]
     Dosage: 20MG TWICE PER DAY
     Route: 048
     Dates: start: 20080214, end: 20080221
  3. FLAGYL [Suspect]
     Dosage: 250MG TWICE PER DAY
     Route: 048
     Dates: start: 20080214, end: 20080221
  4. ADALAT [Concomitant]
     Indication: HYPERTENSION
     Dosage: 40MG PER DAY
     Route: 048
     Dates: start: 20050215
  5. LIPITOR [Concomitant]
     Dosage: 10MG PER DAY
     Route: 048
     Dates: start: 20060617

REACTIONS (1)
  - SUDDEN HEARING LOSS [None]
